FAERS Safety Report 9897477 (Version 2)
Quarter: 2014Q2

REPORT INFORMATION
  Report Type: Spontaneous
  Country: US (occurrence: US)
  Receive Date: 20140214
  Receipt Date: 20140414
  Transmission Date: 20141212
  Serious: No
  Sender: FDA-Public Use
  Company Number: US-009507513-1401USA014498

PATIENT
  Age: 66 Year
  Sex: Male

DRUGS (2)
  1. STERILE DILUENT [Suspect]
     Indication: IMMUNISATION
     Dosage: UNK
     Route: 058
     Dates: start: 20140129
  2. ZOSTAVAX [Suspect]
     Indication: PROPHYLAXIS
     Dosage: .65 ML
     Route: 058
     Dates: start: 20140129, end: 20140129

REACTIONS (2)
  - Expired product administered [Unknown]
  - No adverse event [Unknown]
